FAERS Safety Report 14949851 (Version 1)
Quarter: 2018Q2

REPORT INFORMATION
  Report Type: Spontaneous
  Country: FR (occurrence: FR)
  Receive Date: 20180530
  Receipt Date: 20180530
  Transmission Date: 20180711
  Serious: Yes (Hospitalization)
  Sender: FDA-Public Use
  Company Number: FR-ABBVIE-18K-056-2369901-00

PATIENT
  Age: 46 Year
  Sex: Male
  Weight: 70 kg

DRUGS (1)
  1. HUMIRA [Suspect]
     Active Substance: ADALIMUMAB
     Indication: PSORIASIS
     Dosage: 1 INJECTION
     Route: 058
     Dates: start: 2015, end: 201802

REACTIONS (2)
  - Paraesthesia [Recovered/Resolved]
  - Acute polyneuropathy [Recovered/Resolved]

NARRATIVE: CASE EVENT DATE: 20180327
